FAERS Safety Report 10239113 (Version 1)
Quarter: 2014Q2

REPORT INFORMATION
  Report Type: Spontaneous
  Country: US (occurrence: US)
  Receive Date: 20140616
  Receipt Date: 20140616
  Transmission Date: 20141212
  Serious: No
  Sender: FDA-Public Use
  Company Number: US-ENDO PHARMACEUTICALS INC.-OPIR20130026

PATIENT
  Sex: Male

DRUGS (2)
  1. OPANA 10MG [Suspect]
     Indication: PAIN
     Dosage: 10 MG
     Route: 048
  2. ASPIRIN [Concomitant]
     Indication: PAIN
     Dosage: UNK
     Route: 048

REACTIONS (1)
  - Drug ineffective [Recovered/Resolved]
